FAERS Safety Report 14119245 (Version 5)
Quarter: 2018Q4

REPORT INFORMATION
  Report Type: Spontaneous
  Country: CZ (occurrence: CZ)
  Receive Date: 20171024
  Receipt Date: 20181119
  Transmission Date: 20190204
  Serious: Yes (Death, Life-Threatening, Hospitalization, Other)
  Sender: FDA-Public Use
  Company Number: CZ-AUROBINDO-AUR-APL-2017-41980

PATIENT
  Age: 86 Year
  Sex: Female

DRUGS (1)
  1. METFORMIN [Suspect]
     Active Substance: METFORMIN HYDROCHLORIDE
     Indication: TYPE 2 DIABETES MELLITUS
     Dosage: UNK
     Route: 065

REACTIONS (13)
  - Multiple organ dysfunction syndrome [Fatal]
  - Coagulopathy [Unknown]
  - Systemic infection [Recovering/Resolving]
  - Hyperlactacidaemia [Recovering/Resolving]
  - Deep vein thrombosis [Unknown]
  - Septic shock [Fatal]
  - Muscular weakness [Unknown]
  - Lactic acidosis [Fatal]
  - Acute kidney injury [Unknown]
  - Metabolic acidosis [Recovering/Resolving]
  - Coma [Unknown]
  - Encephalopathy [Unknown]
  - Vasoplegia syndrome [Unknown]

NARRATIVE: CASE EVENT DATE: 201404
